FAERS Safety Report 25134252 (Version 1)
Quarter: 2025Q1

REPORT INFORMATION
  Report Type: Spontaneous
  Country: CN (occurrence: CN)
  Receive Date: 20250328
  Receipt Date: 20250328
  Transmission Date: 20250409
  Serious: Yes (Hospitalization, Other)
  Sender: RANBAXY
  Company Number: CN-SUN PHARMACEUTICAL INDUSTRIES LTD-2025R1-500932

PATIENT
  Age: 9 Year
  Sex: Female

DRUGS (4)
  1. METHYLPREDNISOLONE [Suspect]
     Active Substance: METHYLPREDNISOLONE
     Indication: Still^s disease
     Dosage: 8 MILLIGRAM, BID
     Route: 048
     Dates: start: 201709, end: 201804
  2. NAPROXEN [Suspect]
     Active Substance: NAPROXEN
     Indication: Still^s disease
     Dosage: 0.15 GRAM, BID
     Route: 048
     Dates: start: 201709, end: 201804
  3. PREDNISONE [Suspect]
     Active Substance: PREDNISONE
     Indication: Still^s disease
     Dosage: 15 MILLIGRAM, BID
     Route: 048
     Dates: start: 201709, end: 201804
  4. LEFLUNOMIDE [Suspect]
     Active Substance: LEFLUNOMIDE
     Indication: Still^s disease
     Dosage: 10 MILLIGRAM, DAILY
     Route: 048
     Dates: start: 201709, end: 201804

REACTIONS (5)
  - Hepatic function abnormal [Unknown]
  - Treatment noncompliance [Unknown]
  - Disease recurrence [Unknown]
  - Drug ineffective [Unknown]
  - Therapeutic response decreased [Unknown]
